FAERS Safety Report 10098569 (Version 1)
Quarter: 2014Q2

REPORT INFORMATION
  Report Type: Spontaneous
  Country: FR (occurrence: FR)
  Receive Date: 20140423
  Receipt Date: 20140423
  Transmission Date: 20141212
  Serious: Yes (Hospitalization)
  Sender: FDA-Public Use
  Company Number: FR-ASTRAZENECA-2014SE27146

PATIENT
  Age: 72 Year
  Sex: Male

DRUGS (8)
  1. CRESTOR [Suspect]
     Route: 048
     Dates: start: 201206, end: 201307
  2. CRESTOR [Suspect]
     Route: 048
     Dates: start: 2013
  3. ZOCOR [Suspect]
     Route: 048
     Dates: start: 2005
  4. ZOCOR [Suspect]
     Route: 048
     Dates: start: 201105, end: 201206
  5. APROVEL [Concomitant]
     Route: 048
     Dates: start: 2010
  6. KARDEGIC [Concomitant]
     Dates: start: 2012
  7. ATARAX [Concomitant]
     Dates: start: 2012
  8. SEROPLEX [Concomitant]
     Dates: start: 2012

REACTIONS (1)
  - Interstitial lung disease [Not Recovered/Not Resolved]
